FAERS Safety Report 7450745-4 (Version None)
Quarter: 2011Q2

REPORT INFORMATION
  Report Type: 
  Country: None (occurrence: None)
  Receive Date: 20110502
  Receipt Date: 20110321
  Transmission Date: 20111010
  Serious: Yes (Other)
  Sender: FDA-Public Use
  Company Number: US-BAYER-2010-002467

PATIENT
  Sex: Female
  Weight: 63.492 kg

DRUGS (3)
  1. ORTHO NOVOM BIRTH CONTROL PILL [Concomitant]
     Dosage: UNK
     Dates: start: 20090902
  2. YASMIN [Suspect]
     Indication: PRODUCT USED FOR UNKNOWN INDICATION
  3. YAZ [Suspect]
     Indication: PRODUCT USED FOR UNKNOWN INDICATION
     Dosage: UNK
     Dates: start: 20090901, end: 20091001

REACTIONS (2)
  - BILIARY COLIC [None]
  - GALLBLADDER INJURY [None]
